FAERS Safety Report 15592864 (Version 1)
Quarter: 2018Q4

REPORT INFORMATION
  Report Type: Spontaneous
  Country: GB (occurrence: FR)
  Receive Date: 20181107
  Receipt Date: 20181107
  Transmission Date: 20190205
  Serious: Yes (Hospitalization)
  Sender: FDA-Public Use
  Company Number: FR-FRESENIUS KABI-FK201811459

PATIENT
  Age: 23 Year
  Sex: Male
  Weight: 60 kg

DRUGS (4)
  1. LINEZOLID KABI [Suspect]
     Active Substance: LINEZOLID
     Indication: PNEUMONIA
     Dosage: 1200MG/DAY
     Route: 041
     Dates: start: 20181012, end: 20181013
  2. SPIRAMYCIN [Concomitant]
     Active Substance: SPIRAMYCIN
     Route: 042
     Dates: start: 20181012, end: 20181012
  3. CEFOTAXIME SODIUM [Concomitant]
     Active Substance: CEFOTAXIME SODIUM
     Route: 042
     Dates: start: 20181012, end: 20181013
  4. METRONIDAZOLE. [Concomitant]
     Active Substance: METRONIDAZOLE
     Route: 041
     Dates: start: 20181012, end: 20181013

REACTIONS (3)
  - Dyspnoea [Recovered/Resolved]
  - Tachycardia [Recovered/Resolved]
  - Urticaria [Recovered/Resolved]

NARRATIVE: CASE EVENT DATE: 20181013
